FAERS Safety Report 11558503 (Version 8)
Quarter: 2017Q1

REPORT INFORMATION
  Report Type: Spontaneous
  Country: CA (occurrence: CA)
  Receive Date: 20150928
  Receipt Date: 20170222
  Transmission Date: 20170428
  Serious: Yes (Other)
  Sender: FDA-Public Use
  Company Number: CA-ROCHE-1638746

PATIENT
  Age: 69 Year
  Sex: Female

DRUGS (24)
  1. XOLAIR [Suspect]
     Active Substance: OMALIZUMAB
     Indication: ASTHMA
     Route: 058
     Dates: start: 20131218
  2. XOLAIR [Suspect]
     Active Substance: OMALIZUMAB
     Dosage: UNK
     Route: 058
     Dates: start: 201505
  3. XOLAIR [Suspect]
     Active Substance: OMALIZUMAB
     Dosage: UNK
     Route: 058
     Dates: start: 20170105, end: 20170105
  4. PREDNISONE. [Concomitant]
     Active Substance: PREDNISONE
     Dosage: UNK
     Route: 065
     Dates: start: 20151111
  5. PREDNISONE. [Concomitant]
     Active Substance: PREDNISONE
     Dosage: 10 DAYS
     Route: 065
     Dates: start: 20160625
  6. SPIRIVA [Concomitant]
     Active Substance: TIOTROPIUM BROMIDE MONOHYDRATE
     Route: 065
  7. SYMBICORT [Concomitant]
     Active Substance: BUDESONIDE\FORMOTEROL FUMARATE DIHYDRATE
     Indication: PRODUCT USED FOR UNKNOWN INDICATION
     Dosage: 4 DF (PUFFS), (2-3 TIMES A WEEK)
     Route: 065
  8. PREDNISONE. [Concomitant]
     Active Substance: PREDNISONE
     Dosage: 10 DAYS
     Route: 065
     Dates: start: 20160108
  9. XOLAIR [Suspect]
     Active Substance: OMALIZUMAB
     Dosage: UNK
     Route: 058
     Dates: start: 20161220
  10. SPIRIVA [Concomitant]
     Active Substance: TIOTROPIUM BROMIDE MONOHYDRATE
     Indication: PRODUCT USED FOR UNKNOWN INDICATION
     Dosage: 18 MCG, AT BEDTIME
     Route: 065
  11. PREDNISONE. [Concomitant]
     Active Substance: PREDNISONE
     Dosage: 15 MG, QD (4 COURSES)
     Route: 065
     Dates: start: 201407
  12. OMNARIS [Concomitant]
     Active Substance: CICLESONIDE
     Indication: PRODUCT USED FOR UNKNOWN INDICATION
     Dosage: UNK UNK, QD
     Route: 065
  13. XOLAIR [Suspect]
     Active Substance: OMALIZUMAB
     Dosage: UNK
     Route: 058
     Dates: start: 20161025
  14. XOLAIR [Suspect]
     Active Substance: OMALIZUMAB
     Dosage: UNK
     Route: 058
     Dates: start: 201612
  15. SYMBICORT [Concomitant]
     Active Substance: BUDESONIDE\FORMOTEROL FUMARATE DIHYDRATE
     Dosage: 2 DF (200 MCG TWICE DAILY)
     Route: 065
  16. PREDNISONE. [Concomitant]
     Active Substance: PREDNISONE
     Indication: WHEEZING
     Dosage: UNK
     Route: 065
     Dates: start: 201405
  17. PREDNISONE. [Concomitant]
     Active Substance: PREDNISONE
     Indication: HYPOPNOEA
     Dosage: UNK
     Route: 065
     Dates: start: 201407
  18. PREDNISONE. [Concomitant]
     Active Substance: PREDNISONE
     Dosage: 10 DAYS
     Route: 065
     Dates: start: 20160429
  19. PREDNISONE. [Concomitant]
     Active Substance: PREDNISONE
     Indication: DYSPNOEA
     Dosage: 3 DF, DAILY
     Route: 065
     Dates: start: 201403
  20. PREDNISONE. [Concomitant]
     Active Substance: PREDNISONE
     Dosage: 1WEEK
     Route: 065
     Dates: start: 20160311
  21. PREDNISONE. [Concomitant]
     Active Substance: PREDNISONE
     Dosage: 1 WEEK
     Route: 065
     Dates: start: 20160914
  22. UNIPHYL [Concomitant]
     Active Substance: THEOPHYLLINE ANHYDROUS
     Indication: PRODUCT USED FOR UNKNOWN INDICATION
     Dosage: UNK
     Route: 065
  23. VENTOLIN [Concomitant]
     Active Substance: ALBUTEROL SULFATE
     Indication: PRODUCT USED FOR UNKNOWN INDICATION
     Dosage: 2 DF, TWICE IN THE PAST YEAR
     Route: 065
     Dates: start: 201609
  24. SYMBICORT [Concomitant]
     Active Substance: BUDESONIDE\FORMOTEROL FUMARATE DIHYDRATE
     Dosage: 1 DF (400/12 MCG, TWICE A DAY)
     Route: 065

REACTIONS (21)
  - Insomnia [Not Recovered/Not Resolved]
  - Feeling abnormal [Unknown]
  - Injection site pain [Not Recovered/Not Resolved]
  - Breath sounds abnormal [Unknown]
  - Hyposmia [Unknown]
  - Pain in extremity [Not Recovered/Not Resolved]
  - Asthenia [Unknown]
  - Rhinorrhoea [Not Recovered/Not Resolved]
  - Dyspnoea [Unknown]
  - Cough [Not Recovered/Not Resolved]
  - Dyspnoea exertional [Not Recovered/Not Resolved]
  - Nasal congestion [Not Recovered/Not Resolved]
  - Injection site nodule [Unknown]
  - Hypopnoea [Unknown]
  - Wheezing [Not Recovered/Not Resolved]
  - Seasonal affective disorder [Unknown]
  - Hypogeusia [Unknown]
  - Malaise [Unknown]
  - Forced expiratory volume decreased [Unknown]
  - Internal injury [Unknown]
  - Musculoskeletal pain [Unknown]

NARRATIVE: CASE EVENT DATE: 201403
